FAERS Safety Report 8525770-2 (Version None)
Quarter: 2012Q3

REPORT INFORMATION
  Report Type: 
  Country: None (occurrence: None)
  Receive Date: 20120720
  Receipt Date: 20120710
  Transmission Date: 20120928
  Serious: Yes (Hospitalization, Disabling, Other)
  Sender: FDA-Public Use
  Company Number: US-009507513-1202USA01658

PATIENT

DRUGS (8)
  1. RECLAST [Suspect]
     Indication: OSTEOPOROSIS
     Dates: start: 20091101
  2. FOSAMAX [Suspect]
     Dosage: 10 MG, QD
     Route: 048
     Dates: start: 20080201, end: 20090101
  3. FOSAMAX [Suspect]
     Dosage: 10 MG, QD
     Route: 048
     Dates: start: 20080901, end: 20091001
  4. OMEGA-3 MARINE TRIGLYCERIDES [Concomitant]
     Dosage: UNK UNK, QD
     Dates: start: 19690101
  5. CALCIUM (UNSPECIFIED) [Concomitant]
     Dosage: 1200 MG, UNK
     Route: 048
     Dates: start: 19690101
  6. CHOLECALCIFEROL [Concomitant]
     Dosage: 1600 IU, UNK
     Dates: start: 19690101
  7. FOSAMAX [Suspect]
     Indication: OSTEOPOROSIS
     Dosage: 10 MG, QD
     Route: 048
     Dates: start: 19950101, end: 20080101
  8. MULTI-VITAMINS [Concomitant]
     Dosage: UNK UNK, QD
     Dates: start: 19690101

REACTIONS (40)
  - DEVICE FAILURE [None]
  - MEDICAL DEVICE PAIN [None]
  - HYPERLIPIDAEMIA [None]
  - BALANCE DISORDER [None]
  - FEMUR FRACTURE [None]
  - WRIST FRACTURE [None]
  - PROCEDURAL HYPERTENSION [None]
  - LYMPHOEDEMA [None]
  - TOOTH DISORDER [None]
  - SPINAL CORD COMPRESSION [None]
  - MYOFASCIAL PAIN SYNDROME [None]
  - SENSORY DISTURBANCE [None]
  - HAND FRACTURE [None]
  - HYPERTROPHY [None]
  - INTERVERTEBRAL DISC DEGENERATION [None]
  - CLAUSTROPHOBIA [None]
  - TREATMENT FAILURE [None]
  - LUMBAR SPINAL STENOSIS [None]
  - LACERATION [None]
  - FALL [None]
  - TENDONITIS [None]
  - COMPRESSION FRACTURE [None]
  - RIB FRACTURE [None]
  - HYPERTENSION [None]
  - SPINAL OSTEOARTHRITIS [None]
  - ROAD TRAFFIC ACCIDENT [None]
  - VERTEBRAL FORAMINAL STENOSIS [None]
  - CELLULITIS [None]
  - CORONARY ARTERY DISEASE [None]
  - SCOLIOSIS [None]
  - CATARACT [None]
  - MERALGIA PARAESTHETICA [None]
  - HAEMORRHAGIC ANAEMIA [None]
  - RADICULITIS LUMBOSACRAL [None]
  - LOW TURNOVER OSTEOPATHY [None]
  - DEEP VEIN THROMBOSIS [None]
  - HYPERCHOLESTEROLAEMIA [None]
  - OSTEOARTHRITIS [None]
  - BENIGN BREAST NEOPLASM [None]
  - BURSITIS [None]
